FAERS Safety Report 6359200-6 (Version None)
Quarter: 2009Q3

REPORT INFORMATION
  Report Type: 
  Country: None (occurrence: None)
  Receive Date: 20090917
  Receipt Date: 20070328
  Transmission Date: 20100115
  Serious: Yes (Hospitalization, Other)
  Sender: FDA-Public Use
  Company Number: US-ASTRAZENECA-2006UW05090

PATIENT
  Age: 13240 Day
  Sex: Female
  Weight: 45.4 kg

DRUGS (20)
  1. SEROQUEL [Suspect]
     Indication: ANXIETY
     Dosage: 25 TO 200 MG
     Route: 048
     Dates: start: 20011001, end: 20050701
  2. SEROQUEL [Suspect]
     Indication: DEPRESSION
     Dosage: 25 TO 200 MG
     Route: 048
     Dates: start: 20011001, end: 20050701
  3. SEROQUEL [Suspect]
     Indication: AFFECTIVE DISORDER
     Dosage: 25 TO 200 MG
     Route: 048
     Dates: start: 20011001, end: 20050701
  4. SEROQUEL [Suspect]
     Indication: BIPOLAR DISORDER
     Dosage: 25 TO 200 MG
     Route: 048
     Dates: start: 20011001, end: 20050701
  5. SEROQUEL [Suspect]
     Indication: PANIC DISORDER
     Dosage: 25 TO 200 MG
     Route: 048
     Dates: start: 20011001, end: 20050701
  6. SEROQUEL [Suspect]
     Dosage: 25-200MG
     Route: 048
     Dates: start: 20011024
  7. SEROQUEL [Suspect]
     Dosage: 25-200MG
     Route: 048
     Dates: start: 20011024
  8. SEROQUEL [Suspect]
     Dosage: 25-200MG
     Route: 048
     Dates: start: 20011024
  9. SEROQUEL [Suspect]
     Dosage: 25-200MG
     Route: 048
     Dates: start: 20011024
  10. SEROQUEL [Suspect]
     Dosage: 25-200MG
     Route: 048
     Dates: start: 20011024
  11. ABILIFY [Concomitant]
     Dates: start: 20050101, end: 20060101
  12. OLANZAPINE [Concomitant]
     Dates: start: 20060101
  13. NEURONTIN [Concomitant]
     Indication: ALCOHOL WITHDRAWAL SYNDROME
     Dosage: 300-2700 MG
     Route: 048
     Dates: start: 20010808
  14. GLIPIZIDE [Concomitant]
     Dates: start: 20040317
  15. PROTONIX [Concomitant]
     Dates: start: 20040317
  16. ATIVAN [Concomitant]
     Dates: start: 20010327
  17. TRAZODONE [Concomitant]
     Dosage: 100-150 MG
     Dates: start: 20010327
  18. PAXIL [Concomitant]
     Dosage: 20-60 MG
     Route: 048
     Dates: start: 20010327
  19. EFFEXOR [Concomitant]
     Indication: DEPRESSION
     Dates: start: 20040101
  20. LEXAPRO [Concomitant]
     Dosage: 10-20 MG
     Dates: start: 20041111

REACTIONS (7)
  - DIABETES MELLITUS [None]
  - DIABETES MELLITUS INADEQUATE CONTROL [None]
  - DIABETIC KETOACIDOSIS [None]
  - PANCREATITIS [None]
  - PANCREATITIS CHRONIC [None]
  - POLYNEUROPATHY ALCOHOLIC [None]
  - TYPE 2 DIABETES MELLITUS [None]
